FAERS Safety Report 15210575 (Version 7)
Quarter: 2020Q3

REPORT INFORMATION
  Report Type: Report from Study
  Country: BE (occurrence: BE)
  Receive Date: 20180728
  Receipt Date: 20200710
  Transmission Date: 20201102
  Serious: Yes (Other)
  Sender: FDA-Public Use
  Company Number: BE-ACCORD-070011

PATIENT
  Age: 76 Year
  Sex: Male
  Weight: 85.3 kg

DRUGS (30)
  1. DEANXIT [Concomitant]
     Active Substance: FLUPENTIXOL DIHYDROCHLORIDE\MELITRACEN HYDROCHLORIDE
     Indication: PROPHYLAXIS
     Route: 048
  2. BURINEX [Concomitant]
     Active Substance: BUMETANIDE
     Route: 048
  3. CRESTOR [Concomitant]
     Active Substance: ROSUVASTATIN CALCIUM
  4. ALOXI [Concomitant]
     Active Substance: PALONOSETRON HYDROCHLORIDE
     Indication: PROPHYLAXIS
     Route: 042
     Dates: start: 20161213, end: 20170613
  5. AACIDEXAM [Concomitant]
     Active Substance: DEXAMETHASONE
     Indication: PROPHYLAXIS
     Route: 042
     Dates: start: 20161213, end: 20170613
  6. MEDROL [Concomitant]
     Active Substance: METHYLPREDNISOLONE
     Indication: PRODUCT USED FOR UNKNOWN INDICATION
     Dates: start: 20170623
  7. FLUOROURACIL. [Suspect]
     Active Substance: FLUOROURACIL
     Indication: COLORECTAL CANCER METASTATIC
     Dosage: DOSE 1 UNK UNIT
     Route: 042
     Dates: start: 20161213, end: 20170613
  8. ALDACTONE [Concomitant]
     Active Substance: SPIRONOLACTONE
     Route: 048
  9. CRESTOR [Concomitant]
     Active Substance: ROSUVASTATIN CALCIUM
     Route: 048
  10. FLUOROURACIL. [Suspect]
     Active Substance: FLUOROURACIL
     Indication: COLORECTAL CANCER METASTATIC
     Route: 042
  11. BISOPROLOL [Concomitant]
     Active Substance: BISOPROLOL
     Indication: ORTHOSTATIC HYPOTENSION
     Route: 065
     Dates: end: 20170613
  12. DEANXIT [Concomitant]
     Active Substance: FLUPENTIXOL DIHYDROCHLORIDE\MELITRACEN HYDROCHLORIDE
     Indication: PROPHYLAXIS
  13. IRINOTECAN [Suspect]
     Active Substance: IRINOTECAN
     Indication: COLORECTAL CANCER METASTATIC
     Dosage: DOSE 1 UNK UNIT
     Route: 042
     Dates: start: 20161213, end: 20170613
  14. ATROPINE. [Concomitant]
     Active Substance: ATROPINE
     Indication: PROPHYLAXIS
     Route: 058
     Dates: start: 20161213, end: 20170613
  15. ALOXI [Concomitant]
     Active Substance: PALONOSETRON HYDROCHLORIDE
     Indication: PROPHYLAXIS
     Route: 065
  16. VORINA [Concomitant]
     Indication: PROPHYLAXIS
  17. BURINEX [Concomitant]
     Active Substance: BUMETANIDE
  18. AVASTIN [Suspect]
     Active Substance: BEVACIZUMAB
     Indication: COLORECTAL CANCER METASTATIC
     Dosage: Q2W?DOSE 1 UNK UNIT
     Route: 042
     Dates: start: 20161213
  19. ATROPINE. [Concomitant]
     Active Substance: ATROPINE
     Indication: PROPHYLAXIS
  20. LEUCOVORIN. [Suspect]
     Active Substance: LEUCOVORIN
     Indication: COLORECTAL CANCER METASTATIC
     Dosage: DOSE 1 UNK UNIT
     Route: 042
     Dates: start: 20161213, end: 20170613
  21. VORINA [Concomitant]
     Indication: PROPHYLAXIS
     Route: 042
     Dates: start: 20161213, end: 20170613
  22. PANTOMED [Concomitant]
     Indication: PROPHYLAXIS
     Route: 048
  23. BISOPROLOL [Concomitant]
     Active Substance: BISOPROLOL
     Indication: ORTHOSTATIC HYPOTENSION
     Route: 048
     Dates: end: 20170613
  24. ELIQUIS [Concomitant]
     Active Substance: APIXABAN
     Indication: PROPHYLAXIS
  25. ALDACTONE [Concomitant]
     Active Substance: SPIRONOLACTONE
     Indication: PRODUCT USED FOR UNKNOWN INDICATION
     Route: 048
  26. PANTOMED [Concomitant]
     Indication: PROPHYLAXIS
     Route: 048
  27. LEUCOVORIN. [Suspect]
     Active Substance: LEUCOVORIN
     Indication: COLORECTAL CANCER METASTATIC
     Dosage: DOSE 1 UNK UNIT
     Route: 042
     Dates: start: 20161213, end: 20170613
  28. EMCONCOR MITIS [Concomitant]
     Indication: ORTHOSTATIC HYPOTENSION
     Route: 048
     Dates: end: 20170613
  29. ELIQUIS [Concomitant]
     Active Substance: APIXABAN
     Indication: PROPHYLAXIS
     Route: 048
  30. AVASTIN [Suspect]
     Active Substance: BEVACIZUMAB
     Indication: COLORECTAL CANCER METASTATIC
     Dosage: 2 OT, QW (2X A WEEK)
     Route: 042
     Dates: start: 20161213

REACTIONS (11)
  - Neutropenia [Recovered/Resolved]
  - Inappropriate schedule of product administration [Unknown]
  - General physical health deterioration [Not Recovered/Not Resolved]
  - Dyspnoea [Not Recovered/Not Resolved]
  - Epistaxis [Recovered/Resolved]
  - C-reactive protein increased [Not Recovered/Not Resolved]
  - Decreased appetite [Not Recovered/Not Resolved]
  - Diarrhoea [Not Recovered/Not Resolved]
  - Dysphonia [Not Recovered/Not Resolved]
  - Orthostatic hypotension [Not Recovered/Not Resolved]
  - Blood creatinine decreased [Not Recovered/Not Resolved]

NARRATIVE: CASE EVENT DATE: 20161227
